FAERS Safety Report 10354978 (Version 1)
Quarter: 2014Q3

REPORT INFORMATION
  Report Type: Spontaneous
  Country: IT (occurrence: IT)
  Receive Date: 20140731
  Receipt Date: 20140731
  Transmission Date: 20150326
  Serious: Yes (Other)
  Sender: FDA-Public Use
  Company Number: IT-TEVA-497325ISR

PATIENT
  Age: 68 Year
  Sex: Male
  Weight: 80 kg

DRUGS (4)
  1. COTAREG 160 MG/25 MG [Concomitant]
     Indication: HYPERTENSION
     Dosage: 1 TABLET DAILY;
     Route: 048
  2. METFORAMILLE 1000 MG [Concomitant]
     Indication: DIABETES MELLITUS
     Dosage: 1000 MILLIGRAM DAILY;
     Route: 048
  3. CARBOPLATINO TEVA [Suspect]
     Active Substance: CARBOPLATIN
     Indication: LUNG ADENOCARCINOMA
     Dosage: 631.3 MILLIGRAM DAILY;
     Route: 042
     Dates: start: 20140526, end: 20140616
  4. ALIMTA [Suspect]
     Active Substance: PEMETREXED DISODIUM
     Indication: LUNG ADENOCARCINOMA
     Dosage: 970 MILLIGRAM DAILY;
     Route: 042
     Dates: start: 20140526, end: 20140707

REACTIONS (1)
  - Angina pectoris [Recovered/Resolved]

NARRATIVE: CASE EVENT DATE: 20140707
